FAERS Safety Report 15023516 (Version 1)
Quarter: 2018Q2

REPORT INFORMATION
  Report Type: Report from Study
  Country: ES (occurrence: ES)
  Receive Date: 20180618
  Receipt Date: 20180618
  Transmission Date: 20180711
  Serious: Yes (Life-Threatening, Hospitalization)
  Sender: FDA-Public Use
  Company Number: ES-TEVA-2018-ES-908875

PATIENT
  Age: 7 Year
  Sex: Female
  Weight: 30 kg

DRUGS (15)
  1. CICLOSPORIN [Suspect]
     Active Substance: CYCLOSPORINE
     Indication: PROPHYLAXIS
     Route: 042
     Dates: start: 20170720, end: 20170831
  2. HEPARINA SODICA (1706SO) [Concomitant]
     Indication: PROPHYLAXIS
     Dosage: 3000 IU (INTERNATIONAL UNIT) DAILY;
     Route: 041
     Dates: start: 20170714, end: 20170828
  3. AMFOTERICINA B (408A) [Concomitant]
     Indication: PROPHYLAXIS
     Route: 042
     Dates: start: 20170627, end: 20170814
  4. METILPREDNISOLONA (888A) [Concomitant]
     Active Substance: METHYLPREDNISOLONE
     Indication: PROPHYLAXIS AGAINST TRANSPLANT REJECTION
     Route: 048
     Dates: start: 20170629, end: 20170713
  5. ACICLOVIR (201A) [Concomitant]
     Active Substance: ACYCLOVIR
     Indication: PROPHYLAXIS
     Route: 042
     Dates: start: 20170627, end: 20170814
  6. ENOXAPARINA SODICA (2482SO) [Concomitant]
     Active Substance: ENOXAPARIN SODIUM
     Indication: PROPHYLAXIS
     Dosage: 25 MILLIGRAM DAILY;
     Route: 058
     Dates: start: 20170627, end: 20170814
  7. AMIKACINA SULFATO (372SU) [Concomitant]
     Indication: PROPHYLAXIS
     Route: 042
     Dates: start: 20170714, end: 20170717
  8. CEFEPIMA (7362A) [Concomitant]
     Active Substance: CEFEPIME HYDROCHLORIDE
     Indication: PROPHYLAXIS
     Route: 042
     Dates: start: 20170714, end: 20170719
  9. MYCOPHENOLATE MOFETIL. [Suspect]
     Active Substance: MYCOPHENOLATE MOFETIL
     Indication: PROPHYLAXIS
     Route: 042
     Dates: start: 20170720
  10. MESNA (1078A) [Concomitant]
     Active Substance: MESNA
     Indication: PROPHYLAXIS
     Dosage: 450 MILLIGRAM DAILY;
     Route: 042
     Dates: start: 20170713, end: 20170726
  11. AZITROMICINA (7019A) [Concomitant]
     Active Substance: AZITHROMYCIN
     Indication: PROPHYLAXIS
     Route: 048
     Dates: start: 20170627, end: 20171002
  12. CICLOFOSFAMIDA (120A) [Suspect]
     Active Substance: CYCLOPHOSPHAMIDE
     Indication: PROPHYLAXIS AGAINST TRANSPLANT REJECTION
     Route: 042
     Dates: start: 20170713, end: 20170726
  13. FLUDARABINE [Suspect]
     Active Substance: FLUDARABINE PHOSPHATE
     Indication: PROPHYLAXIS AGAINST TRANSPLANT REJECTION
     Route: 042
     Dates: start: 20170713, end: 20170716
  14. SEPTRIN PEDIATRICO 8 MG/40 MG/ML SUSPENSION ORAL , 1 FRASCO DE 100 ML [Concomitant]
     Active Substance: SULFAMETHOXAZOLE\TRIMETHOPRIM
     Indication: PROPHYLAXIS
     Route: 048
     Dates: start: 20170627, end: 20170713
  15. OMEPRAZOL (2141A) [Concomitant]
     Active Substance: OMEPRAZOLE
     Indication: PROPHYLAXIS
     Dosage: 20 MILLIGRAM DAILY;
     Route: 048
     Dates: start: 20170629, end: 20170713

REACTIONS (7)
  - Diarrhoea [Recovered/Resolved]
  - Klebsiella bacteraemia [Recovered/Resolved]
  - Agranulocytosis [Recovered/Resolved]
  - Mucosal inflammation [Recovered/Resolved]
  - Pulmonary alveolar haemorrhage [Recovered/Resolved]
  - Thrombocytopenia [Not Recovered/Not Resolved]
  - Pneumonia cytomegaloviral [Recovered/Resolved]

NARRATIVE: CASE EVENT DATE: 20170723
